FAERS Safety Report 20784094 (Version 2)
Quarter: 2022Q3

REPORT INFORMATION
  Report Type: Spontaneous
  Country: NL (occurrence: NL)
  Receive Date: 20220504
  Receipt Date: 20220928
  Transmission Date: 20221027
  Serious: Yes (Hospitalization, Congenital Anomaly)
  Sender: FDA-Public Use
  Company Number: None

PATIENT

DRUGS (2)
  1. LETROZOLE [Suspect]
     Active Substance: LETROZOLE
     Indication: Ovulation induction
     Dosage: 2.5 MILLIGRAM DAILY; 1DD FOR 5 DAYS , BRAND NAME NOT SPECIFIED , THERAPY END DATE : ASKU , STRENGTH
     Dates: start: 202112
  2. METHYLDOPA [Concomitant]
     Active Substance: METHYLDOPA
     Indication: Product used for unknown indication
     Dosage: 3DD500MG , THERAPY START DATE AND END DATE : ASKU , STRENGTH : 500 MG , BRAND NAME NOT SPECIFIED

REACTIONS (2)
  - Congenital central nervous system anomaly [Unknown]
  - Maternal exposure during pregnancy [Unknown]

NARRATIVE: CASE EVENT DATE: 20220303
